FAERS Safety Report 6046783-9 (Version None)
Quarter: 2009Q1

REPORT INFORMATION
  Report Type: 
  Country: None (occurrence: None)
  Receive Date: 20090122
  Receipt Date: 20090116
  Transmission Date: 20090719
  Serious: Yes (Hospitalization)
  Sender: FDA-Public Use
  Company Number: A0695008A

PATIENT
  Age: 64 Year
  Sex: Female
  Weight: 65.5 kg

DRUGS (7)
  1. AVANDIA [Suspect]
     Indication: TYPE 2 DIABETES MELLITUS
     Dosage: 8MG PER DAY
     Route: 048
     Dates: start: 20060309, end: 20070531
  2. GLUCOPHAGE [Concomitant]
     Dates: start: 20040101
  3. ATENOLOL [Concomitant]
  4. NITROGLYCERIN [Concomitant]
  5. REQUIP [Concomitant]
  6. TRICOR [Concomitant]
  7. SYNTHROID [Concomitant]

REACTIONS (11)
  - ARTERIOSCLEROSIS [None]
  - ASTHENIA [None]
  - BLOOD CHOLESTEROL INCREASED [None]
  - BUNDLE BRANCH BLOCK RIGHT [None]
  - CORONARY ARTERY DISEASE [None]
  - CORONARY ARTERY OCCLUSION [None]
  - INJURY [None]
  - LEFT ATRIAL DILATATION [None]
  - MYOCARDIAL INFARCTION [None]
  - MYOCARDIAL ISCHAEMIA [None]
  - OEDEMA [None]
